FAERS Safety Report 9184201 (Version 1)
Quarter: 2012Q4

REPORT INFORMATION
  Report Type: 
  Country: US (occurrence: US)
  Receive Date: 20121031
  Receipt Date: 20121031
  Transmission Date: 20130627
  Serious: Yes (Life-Threatening, Hospitalization)
  Sender: FDA-Public Use
  Company Number: US-ELI_LILLY_AND_COMPANY-US201210008636

PATIENT
  Age: 58 Year
  Sex: Female

DRUGS (5)
  1. GEMCITABINE HYDROCHLORIDE [Suspect]
     Indication: PANCREATIC CARCINOMA NON-RESECTABLE
     Dosage: 200 mg/m2, weekly (1/W)
  2. GEMCITABINE HYDROCHLORIDE [Suspect]
     Dosage: 150 mg/m2, single
  3. CETUXIMAB [Concomitant]
     Indication: PANCREATIC CARCINOMA NON-RESECTABLE
     Dosage: 400 mg/m2, single
  4. CETUXIMAB [Concomitant]
     Dosage: 250 mg/m2, weekly (1/W)
  5. THERAPEUTIC RADIOPHARMACEUTICALS [Concomitant]
     Indication: PANCREATIC CARCINOMA NON-RESECTABLE

REACTIONS (20)
  - Respiratory failure [Recovered/Resolved]
  - Diarrhoea [Recovered/Resolved]
  - Renal failure acute [Recovered/Resolved]
  - Interstitial lung disease [Recovered/Resolved]
  - Herpes simplex [Recovered/Resolved]
  - Thrombocytopenia [Recovered/Resolved]
  - Ascites [Recovered/Resolved]
  - Vomiting [Recovered/Resolved]
  - Nausea [Recovered/Resolved]
  - Constipation [Recovered/Resolved]
  - Rash [Recovered/Resolved]
  - Fatigue [Recovered/Resolved]
  - Haemoglobin decreased [Recovered/Resolved]
  - Oesophagitis [Recovered/Resolved]
  - Neuropathy peripheral [Recovered/Resolved]
  - Blood potassium decreased [Recovered/Resolved]
  - Blood magnesium decreased [Recovered/Resolved]
  - Blood sodium decreased [Recovered/Resolved]
  - Blood bicarbonate decreased [Recovered/Resolved]
  - Skin fissures [Recovered/Resolved]
